FAERS Safety Report 5855342-X (Version None)
Quarter: 2008Q3

REPORT INFORMATION
  Report Type: 
  Country: None (occurrence: None)
  Receive Date: 20080821
  Receipt Date: 20080818
  Transmission Date: 20090109
  Serious: Yes (Death)
  Sender: FDA-Public Use
  Company Number: CERZ-1000342

PATIENT
  Age: 79 Year
  Sex: Male

DRUGS (1)
  1. CEREZYME [Suspect]
     Indication: GAUCHER'S DISEASE
     Dosage: 2600 U, Q2W, INTRAVENOUS
     Route: 042
     Dates: start: 19990419, end: 20080731

REACTIONS (1)
  - PNEUMONIA [None]
